FAERS Safety Report 11283434 (Version 1)
Quarter: 2015Q3

REPORT INFORMATION
  Report Type: Spontaneous
  Country: CN (occurrence: CN)
  Receive Date: 20150720
  Receipt Date: 20150720
  Transmission Date: 20151125
  Serious: Yes (Hospitalization)
  Sender: FDA-Public Use
  Company Number: CN-SA-2015SA100929

PATIENT
  Age: 56 Year
  Sex: Female
  Weight: 60 kg

DRUGS (2)
  1. INSULIN [Concomitant]
     Active Substance: INSULIN NOS
     Indication: DIABETES MELLITUS
     Dosage: 12-13 IU
     Route: 058
     Dates: start: 201504
  2. LANTUS [Suspect]
     Active Substance: INSULIN GLARGINE
     Indication: DIABETES MELLITUS
     Dosage: PATIENT TAKES A DOSE OF 4-5 IU DAILY
     Route: 058
     Dates: start: 201412

REACTIONS (2)
  - Expired product administered [Unknown]
  - Protein urine present [Recovering/Resolving]

NARRATIVE: CASE EVENT DATE: 201506
